FAERS Safety Report 7518754-4 (Version None)
Quarter: 2011Q2

REPORT INFORMATION
  Report Type: 
  Country: None (occurrence: None)
  Receive Date: 20110601
  Receipt Date: 20110601
  Transmission Date: 20111010
  Serious: Yes (Other)
  Sender: FDA-Public Use
  Company Number: None

PATIENT
  Age: 74 Year
  Sex: Female
  Weight: 78.4723 kg

DRUGS (1)
  1. PRISTIQ [Suspect]
     Indication: MIGRAINE
     Dates: start: 20080101, end: 20110531

REACTIONS (6)
  - INCREASED APPETITE [None]
  - BLOOD CHOLESTEROL INCREASED [None]
  - BLOOD GLUCOSE INCREASED [None]
  - WEIGHT INCREASED [None]
  - BLOOD PRESSURE INCREASED [None]
  - OEDEMA PERIPHERAL [None]
